FAERS Safety Report 16382576 (Version 1)
Quarter: 2019Q2

REPORT INFORMATION
  Report Type: Spontaneous
  Country: US (occurrence: US)
  Receive Date: 20190425
  Receipt Date: 20190425
  Transmission Date: 20190711
  Serious: Yes (Hospitalization)
  Sender: FDA-Public Use
  Company Number: None

PATIENT
  Sex: Female
  Weight: 68.1 kg

DRUGS (2)
  1. CARBOPLATIN. [Suspect]
     Active Substance: CARBOPLATIN
     Dates: end: 20190311
  2. TAXOL [Suspect]
     Active Substance: PACLITAXEL
     Dates: end: 20190311

REACTIONS (13)
  - Decreased appetite [None]
  - Cystitis [None]
  - Performance status decreased [None]
  - Diarrhoea [None]
  - Hallucination [None]
  - Nausea [None]
  - Asthenia [None]
  - Wrong product administered [None]
  - Product dispensing error [None]
  - Vomiting [None]
  - Generalised tonic-clonic seizure [None]
  - Anaemia [None]
  - Mental status changes [None]

NARRATIVE: CASE EVENT DATE: 20190316
